FAERS Safety Report 6439020-4 (Version None)
Quarter: 2009Q4

REPORT INFORMATION
  Report Type: 
  Country: None (occurrence: None)
  Receive Date: 20091113
  Receipt Date: 20091105
  Transmission Date: 20100525
  Serious: Yes (Other)
  Sender: FDA-Public Use
  Company Number: GR-ROCHE-667548

PATIENT
  Age: 32 Year
  Sex: Male

DRUGS (3)
  1. MYCOPHENOLATE MOFETIL [Suspect]
     Indication: SYSTEMIC LUPUS ERYTHEMATOSUS
     Route: 065
  2. METHYLPREDNISOLONE 4MG TAB [Suspect]
     Indication: SYSTEMIC LUPUS ERYTHEMATOSUS
     Route: 065
  3. METHYLPREDNISOLONE 4MG TAB [Suspect]
     Route: 065

REACTIONS (1)
  - POLYARTHRITIS [None]
